FAERS Safety Report 9840541 (Version 1)
Quarter: 2014Q1

REPORT INFORMATION
  Report Type: Spontaneous
  Country: FR (occurrence: FR)
  Receive Date: 20140124
  Receipt Date: 20140124
  Transmission Date: 20141002
  Serious: Yes (Life-Threatening, Hospitalization)
  Sender: FDA-Public Use
  Company Number: FR-SA-2014SA006049

PATIENT
  Age: 46 Year
  Sex: Male

DRUGS (7)
  1. LOVENOX [Suspect]
     Indication: PRODUCT USED FOR UNKNOWN INDICATION
     Route: 065
     Dates: start: 20131227, end: 20131230
  2. COUMADINE [Concomitant]
     Dates: end: 20131225
  3. BIPRETERAX [Concomitant]
  4. TERCIAN [Concomitant]
  5. BISOPROLOL [Concomitant]
  6. FENOFIBRATE [Concomitant]
  7. HEPARIN [Concomitant]
     Dates: start: 20131225, end: 20131225

REACTIONS (1)
  - Cerebral haematoma [Recovering/Resolving]
